FAERS Safety Report 5674553-X (Version None)
Quarter: 2008Q1

REPORT INFORMATION
  Report Type: 
  Country: None (occurrence: None)
  Receive Date: 20080320
  Receipt Date: 20080317
  Transmission Date: 20080703
  Serious: Yes (Life-Threatening)
  Sender: FDA-Public Use
  Company Number: JP-JNJFOC-20080304288

PATIENT
  Age: 83 Year
  Sex: Male

DRUGS (1)
  1. DORIBAX [Suspect]
     Indication: CHOLANGITIS
     Route: 041

REACTIONS (2)
  - GASTROENTERITIS STAPHYLOCOCCAL [None]
  - SUPERINFECTION [None]
